FAERS Safety Report 24349449 (Version 1)
Quarter: 2024Q3

REPORT INFORMATION
  Report Type: Spontaneous
  Country: GB (occurrence: GB)
  Receive Date: 20240923
  Receipt Date: 20240923
  Transmission Date: 20241016
  Serious: Yes (Other)
  Sender: BAXTER
  Company Number: GB-MHRA-TPP12519918C10912203YC1726060995923

PATIENT
  Age: 77 Year
  Sex: Female
  Weight: 58 kg

DRUGS (6)
  1. FUROSEMIDE [Suspect]
     Active Substance: FUROSEMIDE
     Indication: Ill-defined disorder
     Dosage: (DOSAGE TEXT: FUROSEMIDE 80MG/ 8 ML SOLUTION FOR INJECTION PRE-FILLED SYRINGES) (DOSAGE FORM: SOLUTI
     Route: 065
     Dates: start: 20240827
  2. Adcal [Concomitant]
     Indication: Ill-defined disorder
     Dosage: 1 DOSAGE FORM 12 HOURS, DOSAGE TEXT: TAKE ONE TWICE DAILY, PHARMACEUTICAL FORM (DOSAGE FORM): TPP YC
     Route: 065
     Dates: start: 20231002
  3. AMLODIPINE [Concomitant]
     Active Substance: AMLODIPINE BESYLATE
     Indication: Ill-defined disorder
     Dosage: 1 DOSAGE FORM 1 DAY, DOSAGE TEXT: TAKE ONE DAILY, PHARMACEUTICAL FORM (DOSAGE FORM): TPP YC - PLEASE
     Route: 065
     Dates: start: 20231002
  4. ACETAMINOPHEN [Concomitant]
     Active Substance: ACETAMINOPHEN
     Indication: Ill-defined disorder
     Dosage: 2 DOSAGE FORM 6 HOURS, DOSAGE TEXT: TAKE 2 TABLETS 4 TIMES/DAY
     Route: 065
     Dates: start: 20231002
  5. ROSUVASTATIN [Concomitant]
     Active Substance: ROSUVASTATIN\ROSUVASTATIN CALCIUM
     Indication: Ill-defined disorder
     Dosage: 1 DOSAGE FORM 1 DAY, DOSAGE TEXT: 1 AT NIGHT, PHARMACEUTICAL FORM (DOSAGE FORM): TPP YC - PLEASE REC
     Route: 065
     Dates: start: 20231002
  6. ALENDRONIC ACID [Concomitant]
     Active Substance: ALENDRONIC ACID
     Indication: Ill-defined disorder
     Dosage: 1 DOSAGE FORM 1 WEEK, DOSAGE TEXT: TAKE ONE WEEKLY, PHARMACEUTICAL FORM (DOSAGE FORM): TPP YC - PLEA
     Route: 065
     Dates: start: 20231128

REACTIONS (2)
  - Contusion [Recovered/Resolved]
  - Rash [Recovered/Resolved]

NARRATIVE: CASE EVENT DATE: 20240827
